FAERS Safety Report 6061676-9 (Version None)
Quarter: 2009Q1

REPORT INFORMATION
  Report Type: 
  Country: None (occurrence: None)
  Receive Date: 20090202
  Receipt Date: 20090121
  Transmission Date: 20090719
  Serious: Yes (Death, Hospitalization)
  Sender: FDA-Public Use
  Company Number: FR-WYE-H07877709

PATIENT
  Sex: Male

DRUGS (3)
  1. CORDARONE [Suspect]
     Dosage: UNSPECIFIED
     Dates: start: 20030101, end: 20081101
  2. ALFUZOSIN HCL [Concomitant]
     Dosage: UNSPECIFIED
     Route: 048
  3. VALSARTAN AND HYDROCHLOROTHIAZIDE [Concomitant]
     Dosage: UNSPECIFIED
     Route: 048

REACTIONS (6)
  - CHRONIC HEPATITIS [None]
  - ENCEPHALOPATHY [None]
  - HEPATIC CIRRHOSIS [None]
  - HEPATIC FAILURE [None]
  - HYDRONEPHROSIS [None]
  - PERITONEAL EFFUSION [None]
